FAERS Safety Report 11211253 (Version 2)
Quarter: 2015Q3

REPORT INFORMATION
  Report Type: Spontaneous
  Country: US (occurrence: US)
  Receive Date: 20150623
  Receipt Date: 20150724
  Transmission Date: 20151125
  Serious: Yes (Other)
  Sender: FDA-Public Use
  Company Number: US-ROCHE-1594448

PATIENT
  Age: 95 Year
  Sex: Female

DRUGS (4)
  1. AVASTIN [Suspect]
     Active Substance: BEVACIZUMAB
     Indication: DRY AGE-RELATED MACULAR DEGENERATION
     Dosage: 0.05 CC, 7-8 WKS
     Route: 050
     Dates: start: 20150107, end: 20150122
  2. EYLEA [Suspect]
     Active Substance: AFLIBERCEPT
     Indication: NEOVASCULAR AGE-RELATED MACULAR DEGENERATION
     Dosage: RANGED FROM 5-9 WEEKS
     Route: 031
     Dates: start: 20130919, end: 20140511
  3. AVASTIN [Suspect]
     Active Substance: BEVACIZUMAB
     Dosage: 7 DOSES ADMINISTERED
     Route: 050
     Dates: start: 20130113
  4. EYLEA [Suspect]
     Active Substance: AFLIBERCEPT
     Route: 031
     Dates: start: 20150502

REACTIONS (4)
  - Choroidal haemorrhage [Recovering/Resolving]
  - Endophthalmitis [Recovering/Resolving]
  - Vitritis [Recovering/Resolving]
  - Visual acuity reduced transiently [Recovered/Resolved]

NARRATIVE: CASE EVENT DATE: 20150122
